FAERS Safety Report 4455590-X (Version None)
Quarter: 2004Q3

REPORT INFORMATION
  Report Type: 
  Country: None (occurrence: None)
  Receive Date: 20040922
  Receipt Date: 20040907
  Transmission Date: 20050211
  Serious: Yes (Hospitalization)
  Sender: FDA-Public Use
  Company Number: 200413322FR

PATIENT
  Age: 74 Year
  Sex: Male

DRUGS (4)
  1. RIFADIN [Suspect]
     Indication: BONE INFECTION
     Route: 048
     Dates: start: 20040616, end: 20040722
  2. FUCIDINE CAP [Suspect]
     Indication: BONE INFECTION
     Route: 048
     Dates: start: 20040616
  3. CLAMOXYL [Suspect]
     Indication: BONE INFECTION
     Route: 048
     Dates: start: 20040616
  4. LEVOTHYROX [Suspect]
     Route: 048
     Dates: start: 20040101

REACTIONS (2)
  - EXTRASYSTOLES [None]
  - VENTRICULAR EXTRASYSTOLES [None]
